FAERS Safety Report 9916508 (Version 1)
Quarter: 2014Q1

REPORT INFORMATION
  Report Type: Spontaneous
  Country: TR (occurrence: TR)
  Receive Date: 20140221
  Receipt Date: 20140221
  Transmission Date: 20141002
  Serious: Yes (Life-Threatening, Hospitalization, Other)
  Sender: FDA-Public Use
  Company Number: TR-JNJFOC-20140206836

PATIENT
  Age: 26 Year
  Sex: Female

DRUGS (1)
  1. FENTANYL [Suspect]
     Indication: PRODUCT USED FOR UNKNOWN INDICATION
     Route: 062

REACTIONS (7)
  - Loss of consciousness [Recovered/Resolved]
  - Respiratory arrest [Unknown]
  - Sinus tachycardia [Unknown]
  - Drug abuse [Unknown]
  - Overdose [Unknown]
  - Drug diversion [Unknown]
  - Wrong technique in drug usage process [Unknown]
